FAERS Safety Report 6834445-7 (Version None)
Quarter: 2010Q3

REPORT INFORMATION
  Report Type: 
  Country: None (occurrence: None)
  Receive Date: 20100712
  Receipt Date: 20070604
  Transmission Date: 20110219
  Serious: No
  Sender: FDA-Public Use
  Company Number: US-PFIZER INC-2007027147

PATIENT
  Sex: Female
  Weight: 88.45 kg

DRUGS (7)
  1. CHANTIX [Suspect]
     Indication: SMOKING CESSATION THERAPY
     Dates: start: 20070307
  2. WARFARIN SODIUM [Concomitant]
  3. EFFEXOR [Concomitant]
  4. CARBATROL [Concomitant]
  5. WELCHOL [Concomitant]
  6. NEXIUM [Concomitant]
  7. ATENOLOL [Concomitant]

REACTIONS (4)
  - ABDOMINAL PAIN UPPER [None]
  - DRUG INTOLERANCE [None]
  - DYSGRAPHIA [None]
  - MUSCLE SPASMS [None]
